FAERS Safety Report 15546774 (Version 1)
Quarter: 2018Q4

REPORT INFORMATION
  Report Type: Spontaneous
  Country: US (occurrence: US)
  Receive Date: 20181018
  Receipt Date: 20181018
  Transmission Date: 20190205
  Serious: No
  Sender: FDA-Public Use
  Company Number: None

PATIENT
  Age: 33 Year
  Sex: Male
  Weight: 97.98 kg

DRUGS (1)
  1. OTREXUP [Suspect]
     Active Substance: METHOTREXATE
     Indication: PSORIASIS
     Dosage: ?          OTHER DOSE:17.5 MG (0.4ML);OTHER FREQUENCY:ONCE WEEKLY;?
     Route: 058
     Dates: start: 201804

REACTIONS (1)
  - Infection [None]
